FAERS Safety Report 25083454 (Version 1)
Quarter: 2025Q1

REPORT INFORMATION
  Report Type: Spontaneous
  Country: FR (occurrence: FR)
  Receive Date: 20250317
  Receipt Date: 20250317
  Transmission Date: 20250408
  Serious: Yes (Other)
  Sender: NOVARTIS
  Company Number: None

PATIENT
  Age: 76 Year
  Sex: Female

DRUGS (7)
  1. LAPATINIB [Suspect]
     Active Substance: LAPATINIB
     Indication: Breast cancer
     Dosage: 250 MG(  MG/J, COMPRIM?S PELLICUL?S )
     Route: 048
     Dates: start: 20241206, end: 20241216
  2. LAPATINIB [Suspect]
     Active Substance: LAPATINIB
     Dosage: 750 MG, QD ( MG/J , COMPRIM?S PELLICUL?S )
     Route: 048
     Dates: start: 20241217, end: 20250202
  3. LAPATINIB [Suspect]
     Active Substance: LAPATINIB
     Dosage: 750 MG, QD (MG/J  ,COMPRIM?S PELLICUL?S )
     Route: 048
     Dates: start: 20250210
  4. XELODA [Suspect]
     Active Substance: CAPECITABINE
     Indication: Breast cancer
     Dosage: 2 G, QD(G/J )
     Route: 048
     Dates: start: 20241206, end: 20241219
  5. XELODA [Suspect]
     Active Substance: CAPECITABINE
     Dosage: 2 G, QD (G/J )
     Route: 048
     Dates: start: 20241227, end: 20250110
  6. XELODA [Suspect]
     Active Substance: CAPECITABINE
     Dosage: 2 G, QD (G/J )
     Route: 048
     Dates: start: 20250118, end: 20250202
  7. XELODA [Suspect]
     Active Substance: CAPECITABINE
     Dosage: 2 G, QD (G/J )
     Route: 048
     Dates: start: 20250210

REACTIONS (2)
  - Oesophageal pain [Not Recovered/Not Resolved]
  - Gastrooesophageal reflux disease [Not Recovered/Not Resolved]

NARRATIVE: CASE EVENT DATE: 20241217
